FAERS Safety Report 8820888 (Version 4)
Quarter: 2012Q4

REPORT INFORMATION
  Report Type: Report from Study
  Country: FR (occurrence: FR)
  Receive Date: 20121002
  Receipt Date: 20121105
  Transmission Date: 20130627
  Serious: Yes (Death, Life-Threatening)
  Sender: FDA-Public Use
  Company Number: FR-PFIZER INC-2012241022

PATIENT
  Age: 64 Year
  Sex: Female
  Weight: 58 kg

DRUGS (1)
  1. SUTENT [Suspect]
     Indication: PANCREATIC NEUROENDOCRINE TUMOR
     Dosage: UNK
     Route: 048
     Dates: start: 20120725, end: 20120920

REACTIONS (2)
  - Haemolytic uraemic syndrome [Fatal]
  - Thrombotic microangiopathy [Fatal]
